FAERS Safety Report 25543321 (Version 1)
Quarter: 2025Q3

REPORT INFORMATION
  Report Type: Spontaneous
  Country: JP (occurrence: None)
  Receive Date: 20250711
  Receipt Date: 20250711
  Transmission Date: 20251020
  Serious: Yes (Other)
  Sender: ACS DOBFAR
  Company Number: JP-ACS-20250357

PATIENT
  Age: 67 Year
  Sex: Male

DRUGS (5)
  1. AMPICILLIN [Suspect]
     Active Substance: AMPICILLIN
     Indication: Endocarditis
  2. CLOPIDOGREL [Concomitant]
     Active Substance: CLOPIDOGREL BISULFATE
  3. LANSOPRAZOLE [Concomitant]
     Active Substance: LANSOPRAZOLE
  4. SEMAGLUTIDE [Concomitant]
     Active Substance: SEMAGLUTIDE
  5. TRICHLORMETHIAZIDE [Concomitant]
     Active Substance: TRICHLORMETHIAZIDE

REACTIONS (2)
  - Tubulointerstitial nephritis [Unknown]
  - Off label use [Unknown]
